FAERS Safety Report 9731175 (Version 2)
Quarter: 2013Q4

REPORT INFORMATION
  Report Type: Spontaneous
  Country: PH (occurrence: PH)
  Receive Date: 20131203
  Receipt Date: 20131209
  Transmission Date: 20140711
  Serious: Yes (Death)
  Sender: FDA-Public Use
  Company Number: PH-009507513-1312PHL000219

PATIENT
  Age: 78 Year
  Sex: Male

DRUGS (1)
  1. COZAAR [Suspect]
     Dosage: UNKNOWN
     Route: 048
     Dates: start: 20121112

REACTIONS (1)
  - Road traffic accident [Fatal]
